FAERS Safety Report 14754004 (Version 5)
Quarter: 2018Q4

REPORT INFORMATION
  Report Type: Report from Study
  Country: US (occurrence: US)
  Receive Date: 20180412
  Receipt Date: 20181031
  Transmission Date: 20190204
  Serious: Yes (Hospitalization)
  Sender: FDA-Public Use
  Company Number: US-ACTELION-A-US2018-170606

PATIENT
  Age: 29 Year
  Sex: Female
  Weight: 49.89 kg

DRUGS (5)
  1. REMODULIN [Concomitant]
     Active Substance: TREPROSTINIL
     Dosage: UNK
     Dates: start: 201804
  2. WARFARIN [Concomitant]
     Active Substance: WARFARIN
  3. TRACLEER [Suspect]
     Active Substance: BOSENTAN
     Indication: PULMONARY HYPERTENSION
     Dosage: 62.5 MG, BID
     Route: 048
  4. ADCIRCA [Concomitant]
     Active Substance: TADALAFIL
  5. TRACLEER [Suspect]
     Active Substance: BOSENTAN
     Dosage: 125 MG, BID
     Route: 048

REACTIONS (11)
  - Dyspnoea [Unknown]
  - Catheter site haemorrhage [Unknown]
  - Fluid overload [Unknown]
  - Lung disorder [Unknown]
  - Pain in extremity [Unknown]
  - Pain in jaw [Unknown]
  - Catheter site pain [Unknown]
  - Diarrhoea [Unknown]
  - Generalised erythema [Unknown]
  - Catheter site inflammation [Unknown]
  - Nausea [Unknown]
